FAERS Safety Report 25102862 (Version 1)
Quarter: 2025Q1

REPORT INFORMATION
  Report Type: Spontaneous
  Country: IT (occurrence: IT)
  Receive Date: 20250321
  Receipt Date: 20250321
  Transmission Date: 20250408
  Serious: Yes (Hospitalization, Congenital Anomaly, Other)
  Sender: GLAXOSMITHKLINE
  Company Number: IT-GLAXOSMITHKLINE INC-IT2025GSK032413

PATIENT

DRUGS (1)
  1. VALACYCLOVIR HYDROCHLORIDE [Suspect]
     Active Substance: VALACYCLOVIR HYDROCHLORIDE
     Indication: Cytomegalovirus infection
     Dosage: 2 G, QID (EVERY 6 HRS)
     Route: 064

REACTIONS (4)
  - Congenital cytomegalovirus infection [Unknown]
  - Vertical infection transmission [Unknown]
  - Thrombocytopenia [Unknown]
  - Foetal exposure during pregnancy [Unknown]
